FAERS Safety Report 12611609 (Version 2)
Quarter: 2016Q3

REPORT INFORMATION
  Report Type: Spontaneous
  Country: CA (occurrence: CA)
  Receive Date: 20160801
  Receipt Date: 20160803
  Transmission Date: 20161109
  Serious: Yes (Hospitalization, Other)
  Sender: FDA-Public Use
  Company Number: CA-PFIZER INC-2016363715

PATIENT
  Age: 39 Year
  Sex: Male

DRUGS (6)
  1. PHENYTOIN. [Suspect]
     Active Substance: PHENYTOIN
     Dosage: UNK
  2. ESCITALOPRAM [Interacting]
     Active Substance: ESCITALOPRAM OXALATE
     Dosage: UNK
  3. OLANZAPINE. [Interacting]
     Active Substance: OLANZAPINE
     Dosage: UNK
  4. BUPROPION. [Interacting]
     Active Substance: BUPROPION
     Dosage: UNK
  5. PRIMIDONE. [Interacting]
     Active Substance: PRIMIDONE
     Dosage: UNK,
  6. QUETIAPINE. [Interacting]
     Active Substance: QUETIAPINE

REACTIONS (4)
  - Drug interaction [Recovered/Resolved]
  - Overdose [Recovered/Resolved]
  - Serotonin syndrome [Recovered/Resolved]
  - Toxicity to various agents [Recovered/Resolved]
